FAERS Safety Report 22130640 (Version 1)
Quarter: 2023Q1

REPORT INFORMATION
  Report Type: Spontaneous
  Country: US (occurrence: None)
  Receive Date: 20230322
  Receipt Date: 20230322
  Transmission Date: 20230418
  Serious: Yes (Other)
  Sender: FDA-Public Use
  Company Number: None

PATIENT
  Age: 68 Year
  Sex: Female
  Weight: 78.02 kg

DRUGS (2)
  1. REMICADE [Suspect]
     Active Substance: INFLIXIMAB
     Dosage: OTHER FREQUENCY : EVERY 8 WEEKS;?
     Route: 041
     Dates: start: 20230322, end: 20230322
  2. REMICADE [Concomitant]
     Active Substance: INFLIXIMAB
     Dates: start: 20230322, end: 20230322

REACTIONS (10)
  - Flushing [None]
  - Back pain [None]
  - Back pain [None]
  - Abdominal pain upper [None]
  - Chest pain [None]
  - Blood pressure increased [None]
  - Chills [None]
  - Chills [None]
  - Oxygen saturation decreased [None]
  - Infusion related reaction [None]

NARRATIVE: CASE EVENT DATE: 20230322
